FAERS Safety Report 8601648-0 (Version None)
Quarter: 2012Q3

REPORT INFORMATION
  Report Type: 
  Country: None (occurrence: None)
  Receive Date: 20120817
  Receipt Date: 20120807
  Transmission Date: 20120928
  Serious: No
  Sender: FDA-Public Use
  Company Number: US-JNJFOC-20120707083

PATIENT
  Sex: Male
  Weight: 60.33 kg

DRUGS (12)
  1. METOPROLOL TARTRATE [Concomitant]
     Route: 065
  2. PLAVIX [Concomitant]
     Route: 065
  3. VICODIN [Concomitant]
     Route: 065
  4. CYMBALTA [Concomitant]
     Route: 065
  5. MS CONTIN [Concomitant]
     Route: 065
  6. ZYTIGA [Suspect]
     Indication: PROSTATE CANCER
     Route: 048
     Dates: start: 20120623
  7. XGEVA [Concomitant]
     Route: 065
  8. PREDNISONE TAB [Concomitant]
     Route: 065
  9. MEGACE [Concomitant]
     Route: 065
  10. MIRALAX [Concomitant]
     Route: 065
  11. LUPRON [Concomitant]
     Route: 065
  12. VITAMIN D [Concomitant]
     Route: 065

REACTIONS (2)
  - PLATELET COUNT DECREASED [None]
  - BLOOD ALKALINE PHOSPHATASE INCREASED [None]
